FAERS Safety Report 16709993 (Version 2)
Quarter: 2019Q3

REPORT INFORMATION
  Report Type: Spontaneous
  Country: PR (occurrence: PR)
  Receive Date: 20190816
  Receipt Date: 20190909
  Transmission Date: 20191004
  Serious: Yes (Other)
  Sender: FDA-Public Use
  Company Number: PR-PFIZER INC-2019349648

PATIENT
  Age: 53 Year
  Sex: Female
  Weight: 86.17 kg

DRUGS (1)
  1. IBRANCE [Suspect]
     Active Substance: PALBOCICLIB
     Indication: BREAST CANCER FEMALE
     Dosage: 125 MG, CYCLIC (1 CAP DAILY 21 DAYS, 7 DAYS OFF)
     Route: 048
     Dates: start: 20190813

REACTIONS (7)
  - Dysphonia [Unknown]
  - Expired product administered [Unknown]
  - Influenza [Unknown]
  - Dry mouth [Unknown]
  - Fatigue [Unknown]
  - Pharyngitis [Unknown]
  - Taste disorder [Unknown]

NARRATIVE: CASE EVENT DATE: 20190813
